FAERS Safety Report 23476754 (Version 1)
Quarter: 2024Q1

REPORT INFORMATION
  Report Type: Report from Study
  Country: US (occurrence: US)
  Receive Date: 20240204
  Receipt Date: 20240204
  Transmission Date: 20240410
  Serious: No
  Sender: FDA-Public Use
  Company Number: US-EXELIXIS-CABO-23064277

PATIENT
  Sex: Female

DRUGS (11)
  1. CABOMETYX [Suspect]
     Active Substance: CABOZANTINIB S-MALATE
     Indication: Renal cell carcinoma
     Dosage: 60 MG
     Dates: start: 20230228
  2. CABOMETYX [Suspect]
     Active Substance: CABOZANTINIB S-MALATE
     Dosage: 20 MG, QD
  3. LOSARTAN [Concomitant]
     Active Substance: LOSARTAN
  4. AMLODIPINE [Concomitant]
     Active Substance: AMLODIPINE BESYLATE
  5. FENOFIBRATE [Concomitant]
     Active Substance: FENOFIBRATE
  6. SIMVASTATIN [Concomitant]
     Active Substance: SIMVASTATIN
  7. METHIMAZOLE [Concomitant]
     Active Substance: METHIMAZOLE
  8. ALLOPURINOL [Concomitant]
     Active Substance: ALLOPURINOL
  9. VITAMINS [Concomitant]
     Active Substance: VITAMINS
  10. OMEGA 3 [Concomitant]
     Active Substance: CAPSAICIN
  11. ATENOLOL [Concomitant]
     Active Substance: ATENOLOL

REACTIONS (5)
  - Blood pressure fluctuation [Recovering/Resolving]
  - Rash [Unknown]
  - Diarrhoea [Recovered/Resolved]
  - Weight decreased [Recovered/Resolved]
  - Constipation [Recovered/Resolved]
